FAERS Safety Report 13998767 (Version 1)
Quarter: 2017Q3

REPORT INFORMATION
  Report Type: Spontaneous
  Country: US (occurrence: US)
  Receive Date: 20170921
  Receipt Date: 20170921
  Transmission Date: 20171128
  Serious: No
  Sender: FDA-Public Use
  Company Number: US-NEUROCRINE BIOSCIENCES INC.-2017NBI00637

PATIENT
  Age: 61 Year
  Sex: Female
  Weight: 66.28 kg

DRUGS (3)
  1. COGENTIN [Concomitant]
     Active Substance: BENZTROPINE MESYLATE
  2. INGREZZA [Suspect]
     Active Substance: VALBENAZINE
     Indication: TARDIVE DYSKINESIA
     Route: 048
     Dates: start: 201707
  3. PROLIXIN DEC [Concomitant]
     Route: 030

REACTIONS (1)
  - Suicidal ideation [Recovered/Resolved]

NARRATIVE: CASE EVENT DATE: 201707
